FAERS Safety Report 7289605-0 (Version None)
Quarter: 2011Q1

REPORT INFORMATION
  Report Type: 
  Country: None (occurrence: None)
  Receive Date: 20110125
  Receipt Date: 20110110
  Transmission Date: 20110831
  Serious: Yes (Death)
  Sender: FDA-Public Use
  Company Number: 025517

PATIENT
  Age: 69 Year
  Sex: Female

DRUGS (6)
  1. FUROSEMIDE [Suspect]
  2. DILTIAZEM [Suspect]
  3. ALPRAZOLAM [Suspect]
  4. CARVEDILOL [Suspect]
  5. LISINOPRIL [Suspect]
  6. CARDIAC GLYCOSIDES [Suspect]

REACTIONS (2)
  - CARDIOACTIVE DRUG LEVEL INCREASED [None]
  - COMPLETED SUICIDE [None]
